FAERS Safety Report 7952287-6 (Version None)
Quarter: 2011Q4

REPORT INFORMATION
  Report Type: 
  Country: None (occurrence: None)
  Receive Date: 20111129
  Receipt Date: 20111114
  Transmission Date: 20120403
  Serious: Yes (Other)
  Sender: FDA-Public Use
  Company Number: MC201100566

PATIENT
  Age: 68 Year
  Sex: Male

DRUGS (6)
  1. ANGIOMAX [Suspect]
     Indication: CATHETERISATION CARDIAC
     Dosage: 250 MG, INTRAVENOUS
     Route: 042
     Dates: start: 20110912, end: 20110913
  2. EFFIENT [Suspect]
     Indication: CATHETERISATION CARDIAC
     Dosage: 60 MG, ORAL
     Route: 048
     Dates: start: 20110912, end: 20110912
  3. ASPIRIN [Suspect]
     Indication: PERIPHERAL VASCULAR DISORDER
     Dosage: 100 MG, ORAL
     Route: 048
     Dates: start: 20100101
  4. ENOXAPARIN SODIUM [Suspect]
     Indication: CATHETERISATION CARDIAC
     Dosage: 70 MG, SUBCUTANEOUS
     Route: 058
     Dates: start: 20110912, end: 20110913
  5. CHLORPROMAZINE HCL [Concomitant]
  6. AMIODARONE (AMIODARONE HYDROCHLORIDE) [Concomitant]

REACTIONS (2)
  - DRUG INTERACTION [None]
  - ANAEMIA [None]
